FAERS Safety Report 10098430 (Version 2)
Quarter: 2014Q2

REPORT INFORMATION
  Report Type: Spontaneous
  Country: US (occurrence: US)
  Receive Date: 20140423
  Receipt Date: 20140509
  Transmission Date: 20141212
  Serious: No
  Sender: FDA-Public Use
  Company Number: US-PFIZER INC-2014112693

PATIENT
  Age: 54 Year
  Sex: Female

DRUGS (4)
  1. EFFEXOR XR [Suspect]
     Indication: ANXIETY DISORDER
     Dosage: 37.5 MG, DAILY
     Route: 048
     Dates: start: 20140417, end: 20140419
  2. EFFEXOR XR [Suspect]
     Indication: HOT FLUSH
  3. CLONAZEPAM [Concomitant]
     Indication: ANXIETY DISORDER
     Dosage: 0.5 MG AS NEEDED AT BEDTIME
     Dates: start: 20140404
  4. BROMAZEPAM [Concomitant]
     Indication: ANXIETY DISORDER
     Dosage: UNK

REACTIONS (1)
  - Face oedema [Recovered/Resolved]
